FAERS Safety Report 21571988 (Version 2)
Quarter: 2022Q4

REPORT INFORMATION
  Report Type: Report from Study
  Country: US (occurrence: US)
  Receive Date: 20221109
  Receipt Date: 20221113
  Transmission Date: 20230113
  Serious: No
  Sender: FDA-Public Use
  Company Number: US-002147023-NVSC2022US249989

PATIENT
  Age: 44 Year
  Sex: Male

DRUGS (3)
  1. ENTRESTO [Suspect]
     Active Substance: SACUBITRIL\VALSARTAN
     Indication: Cardiac failure
     Dosage: 1 DOSAGE FORM, BID (97/103MG)
     Route: 048
     Dates: start: 202002
  2. TORSEMIDE [Suspect]
     Active Substance: TORSEMIDE
     Indication: Polyuria
     Dosage: UNK
     Route: 048
     Dates: start: 202002
  3. TORSEMIDE [Suspect]
     Active Substance: TORSEMIDE
     Indication: Dyspnoea
     Dosage: UNK, PRN (DOSAGE REDUCED IN JULY 2020 TO TAKE AS NEEDED)
     Route: 065
     Dates: start: 202007

REACTIONS (3)
  - Abdominal distension [Recovered/Resolved]
  - Dyspnoea [Recovered/Resolved]
  - Back pain [Recovering/Resolving]

NARRATIVE: CASE EVENT DATE: 20200701
